FAERS Safety Report 7486935-4 (Version None)
Quarter: 2011Q2

REPORT INFORMATION
  Report Type: 
  Country: None (occurrence: None)
  Receive Date: 20110517
  Receipt Date: 20100729
  Transmission Date: 20111010
  Serious: No
  Sender: FDA-Public Use
  Company Number: US-AMGEN-TCS422335

PATIENT
  Age: 54 Year
  Sex: Male
  Weight: 104 kg

DRUGS (4)
  1. CLOBETASOL PROPIONATE [Concomitant]
     Dosage: .05 %, UNK
  2. ACITRETIN [Concomitant]
     Dosage: 25 MG, QD
     Route: 048
     Dates: end: 20091228
  3. ENBREL [Suspect]
     Indication: PSORIASIS
     Dosage: 50 MG, QWK
     Route: 058
     Dates: start: 20090729
  4. DESONIDE [Concomitant]
     Dosage: .05 %, UNK

REACTIONS (4)
  - PSORIASIS [None]
  - BALANCE DISORDER [None]
  - THERAPEUTIC RESPONSE DECREASED [None]
  - DIZZINESS [None]
